FAERS Safety Report 10218639 (Version 1)
Quarter: 2014Q1

REPORT INFORMATION
  Report Type: Spontaneous
  Country: US (occurrence: None)
  Receive Date: 20140306
  Receipt Date: 20140306
  Transmission Date: 20141002
  Serious: Yes (Hospitalization, Other)
  Sender: FDA-Public Use
  Company Number: 163-21880-13054212

PATIENT
  Age: 68 Year
  Sex: Male

DRUGS (3)
  1. REVLIMID [Suspect]
     Indication: PLASMA CELL MYELOMA
     Route: 048
     Dates: start: 201110
  2. VELCADE (BORTEZOMIB) (INJECTION) [Concomitant]
  3. DECADRON (DEXAMETHASONE) (UNKNOWN) [Concomitant]

REACTIONS (5)
  - Influenza [None]
  - Febrile neutropenia [None]
  - Pancytopenia [None]
  - Thrombocytopenia [None]
  - Neutropenia [None]
